FAERS Safety Report 15127968 (Version 2)
Quarter: 2018Q3

REPORT INFORMATION
  Report Type: Report from Study
  Country: CN (occurrence: CN)
  Receive Date: 20180710
  Receipt Date: 20180720
  Transmission Date: 20181010
  Serious: Yes (Hospitalization)
  Sender: FDA-Public Use
  Company Number: CN-ASTRAZENECA-2018SE87607

PATIENT
  Age: 20027 Day
  Sex: Male

DRUGS (15)
  1. PANCREATIC KININOGENASE FOR INJECTION [Concomitant]
     Indication: DIABETES MELLITUS
     Dosage: 40 PELLET DOSING UNIT DAILY
     Route: 041
     Dates: start: 20160808
  2. GLUCOBAY [Concomitant]
     Active Substance: ACARBOSE
     Indication: TYPE 2 DIABETES MELLITUS
     Route: 048
     Dates: start: 20160812
  3. BETALOC [Concomitant]
     Active Substance: METOPROLOL TARTRATE
     Indication: HYPERTENSION
     Route: 048
     Dates: start: 20170410
  4. EPANOVA [Suspect]
     Active Substance: OMEGA-3-CARBOXYLIC ACIDS
     Indication: HYPERTRIGLYCERIDAEMIA
     Route: 048
     Dates: start: 20160607, end: 20160712
  5. PENCICLOVIR. [Concomitant]
     Active Substance: PENCICLOVIR
     Indication: HERPES ZOSTER
     Dates: start: 20180702, end: 20180712
  6. VITAMIN B1 [Concomitant]
     Active Substance: THIAMINE HYDROCHLORIDE
     Indication: HERPES ZOSTER
     Route: 058
     Dates: start: 20180702, end: 20180712
  7. COBAMAMIDE [Concomitant]
     Active Substance: COBAMAMIDE
     Indication: HERPES ZOSTER
     Route: 030
     Dates: start: 20180702, end: 20180712
  8. IRBESARTAN. [Concomitant]
     Active Substance: IRBESARTAN
     Indication: HYPERTENSION
     Route: 048
     Dates: start: 20170410
  9. PREGABALIN. [Concomitant]
     Active Substance: PREGABALIN
     Indication: HERPES ZOSTER
     Route: 048
     Dates: start: 20180702, end: 20180712
  10. EPANOVA [Suspect]
     Active Substance: OMEGA-3-CARBOXYLIC ACIDS
     Indication: HYPERTRIGLYCERIDAEMIA
     Route: 048
     Dates: start: 20160721
  11. PROTEIN HYDROLYSATE [Concomitant]
     Active Substance: PROTEIN HYDROLYSATE
     Indication: DIABETES MELLITUS
     Route: 041
     Dates: start: 20160808
  12. PENCICLOVIR. [Concomitant]
     Active Substance: PENCICLOVIR
     Indication: HERPES ZOSTER
     Route: 041
     Dates: start: 20180702, end: 20180712
  13. LIPITOR [Concomitant]
     Active Substance: ATORVASTATIN CALCIUM
     Indication: HYPERLIPIDAEMIA
     Route: 048
     Dates: start: 2010
  14. HUMALOG25 [Concomitant]
     Indication: TYPE 2 DIABETES MELLITUS
     Dosage: 20 PATCH DOSING UNIT BID
     Route: 058
     Dates: start: 20170410
  15. BAYASPRIN [Concomitant]
     Indication: CORONARY ARTERY DISEASE
     Route: 048
     Dates: start: 20170410

REACTIONS (1)
  - Coronary artery disease [Recovered/Resolved]

NARRATIVE: CASE EVENT DATE: 20180702
